FAERS Safety Report 18915045 (Version 1)
Quarter: 2021Q1

REPORT INFORMATION
  Report Type: Spontaneous
  Country: US (occurrence: US)
  Receive Date: 20210219
  Receipt Date: 20210219
  Transmission Date: 20210420
  Serious: Yes (Hospitalization)
  Sender: FDA-Public Use
  Company Number: US-BEH-2021128549

PATIENT
  Sex: Male

DRUGS (3)
  1. HIZENTRA [Suspect]
     Active Substance: HUMAN IMMUNOGLOBULIN G
     Route: 065
  2. POLYETHYLENE GLYCOL [Suspect]
     Active Substance: POLYETHYLENE GLYCOLS
     Route: 065
  3. POLYSORBATE 20. [Suspect]
     Active Substance: POLYSORBATE 20
     Route: 065

REACTIONS (2)
  - Anaphylactic reaction [Unknown]
  - Allergic reaction to excipient [Unknown]
